FAERS Safety Report 8614952-7 (Version None)
Quarter: 2012Q3

REPORT INFORMATION
  Report Type: 
  Country: None (occurrence: None)
  Receive Date: 20120814
  Receipt Date: 20120814
  Transmission Date: 20120928
  Serious: Yes (Other)
  Sender: FDA-Public Use
  Company Number: None

PATIENT
  Age: 59 Year
  Sex: Female
  Weight: 67.1324 kg

DRUGS (1)
  1. VAGIFEM [Suspect]
     Indication: BLOOD OESTROGEN
     Dosage: 10 MCG, 2XWEEK, VAGINALLY
     Route: 067
     Dates: start: 20120501, end: 20120801

REACTIONS (2)
  - PRODUCT SOLUBILITY ABNORMAL [None]
  - DRUG INEFFECTIVE [None]
